FAERS Safety Report 6442818-X (Version None)
Quarter: 2009Q4

REPORT INFORMATION
  Report Type: 
  Country: None (occurrence: None)
  Receive Date: 20091112
  Receipt Date: 20091030
  Transmission Date: 20100525
  Serious: Yes (Hospitalization, Other)
  Sender: FDA-Public Use
  Company Number: 423465

PATIENT
  Age: 58 Year
  Sex: Female
  Weight: 68 kg

DRUGS (9)
  1. (METHOTREXATE) [Suspect]
     Indication: RHEUMATOID ARTHRITIS
     Dosage: 17.5 MG, 1 WEEK,
  2. REMICADE [Suspect]
     Indication: RHEUMATOID ARTHRITIS
     Dosage: 250 MG, INTRAVENOUS
     Route: 042
     Dates: start: 20041111
  3. (AMITRIPTYLINE) [Concomitant]
  4. FOLIC ACID [Concomitant]
  5. (GLIMEPIRIDE) [Concomitant]
  6. (LOSARTAN) [Concomitant]
  7. NABUMETONE [Concomitant]
  8. SIMVASTATIN [Concomitant]
  9. TRAMADOL HCL [Concomitant]

REACTIONS (13)
  - ARTHRALGIA [None]
  - BLOOD DISORDER [None]
  - CELLULITIS [None]
  - CHILLS [None]
  - ERYTHEMA [None]
  - FEELING HOT [None]
  - INDURATION [None]
  - INFECTION [None]
  - PYREXIA [None]
  - RASH [None]
  - SEPSIS [None]
  - SOFT TISSUE INFECTION [None]
  - TENDERNESS [None]
